FAERS Safety Report 4524683-0 (Version None)
Quarter: 2004Q4

REPORT INFORMATION
  Report Type: 
  Country: None (occurrence: None)
  Receive Date: 20041211
  Receipt Date: 20030605
  Transmission Date: 20050328
  Serious: Yes (Hospitalization, Other)
  Sender: FDA-Public Use
  Company Number: US-MERCK-0306USA00925

PATIENT
  Age: 62 Year
  Sex: Female

DRUGS (7)
  1. VIOXX [Suspect]
     Indication: SPONDYLITIS
     Route: 048
     Dates: end: 20010601
  2. COZAAR [Concomitant]
     Route: 048
  3. CARDIZEM [Concomitant]
     Route: 065
  4. PREMARIN [Concomitant]
     Route: 048
  5. DARVOCET-N 100 [Concomitant]
     Route: 065
  6. ECOTRIN [Concomitant]
     Route: 048
     Dates: end: 20010601
  7. ECOTRIN [Concomitant]
     Route: 048
     Dates: start: 20010624

REACTIONS (29)
  - ABDOMINAL ADHESIONS [None]
  - ABDOMINAL PAIN [None]
  - ADVERSE EVENT [None]
  - ANAEMIA [None]
  - ANGINA PECTORIS [None]
  - ASTHENIA [None]
  - CAROTID ARTERIAL EMBOLUS [None]
  - CAROTID ARTERY STENOSIS [None]
  - CAROTID BRUIT [None]
  - CONVULSION [None]
  - CORONARY ARTERY DISEASE [None]
  - DIVERTICULUM INTESTINAL [None]
  - DIZZINESS [None]
  - DYSPHAGIA [None]
  - DYSPNOEA [None]
  - GASTRIC ULCER [None]
  - GASTROINTESTINAL HAEMORRHAGE [None]
  - HEADACHE [None]
  - HIATUS HERNIA [None]
  - HYPERTENSION [None]
  - HYPOAESTHESIA [None]
  - HYPOCHROMIC ANAEMIA [None]
  - NECK MASS [None]
  - PELVIC PERITONEAL ADHESIONS [None]
  - PERIPHERAL VASCULAR DISORDER [None]
  - PHARYNGOLARYNGEAL PAIN [None]
  - SUBCUTANEOUS HAEMATOMA [None]
  - TRANSIENT ISCHAEMIC ATTACK [None]
  - VERTEBRAL ARTERY STENOSIS [None]
